FAERS Safety Report 7171250-9 (Version None)
Quarter: 2010Q4

REPORT INFORMATION
  Report Type: 
  Country: None (occurrence: None)
  Receive Date: 20101217
  Receipt Date: 20101212
  Transmission Date: 20110411
  Serious: Yes (Other)
  Sender: FDA-Public Use
  Company Number: RO-ASTRAZENECA-2010SE58882

PATIENT
  Sex: Female
  Weight: 77 kg

DRUGS (2)
  1. FASLODEX [Suspect]
     Indication: BREAST CANCER METASTATIC
     Route: 030
     Dates: start: 20100608, end: 20101212
  2. FASLODEX [Suspect]
     Dosage: SECOND INJECTION OF FASLODEX 250 MG
     Route: 030
     Dates: start: 20101212, end: 20101212

REACTIONS (5)
  - BRONCHOSPASM [None]
  - CHEST PAIN [None]
  - LACRIMATION INCREASED [None]
  - RASH [None]
  - TACHYCARDIA [None]
